FAERS Safety Report 6667829-0 (Version None)
Quarter: 2010Q2

REPORT INFORMATION
  Report Type: 
  Country: None (occurrence: None)
  Receive Date: 20100405
  Receipt Date: 20100323
  Transmission Date: 20101027
  Serious: Yes (Other)
  Sender: FDA-Public Use
  Company Number: US-PFIZER INC-2010037946

PATIENT

DRUGS (1)
  1. CHANTIX [Suspect]

REACTIONS (1)
  - ULCER [None]
